FAERS Safety Report 7459779-7 (Version None)
Quarter: 2011Q2

REPORT INFORMATION
  Report Type: 
  Country: None (occurrence: None)
  Receive Date: 20110505
  Receipt Date: 20110428
  Transmission Date: 20111010
  Serious: Yes (Other)
  Sender: FDA-Public Use
  Company Number: US-AMGEN-USASP2011022435

PATIENT
  Age: 53 Year
  Sex: Female

DRUGS (3)
  1. IMITREX [Concomitant]
  2. PROLIA [Suspect]
     Indication: OSTEOPOROSIS POSTMENOPAUSAL
     Dosage: 60 MG, Q6MO
     Dates: start: 20110426
  3. MULTIVITAMIN                       /00097801/ [Concomitant]

REACTIONS (5)
  - OSTEITIS [None]
  - JAW DISORDER [None]
  - APHAGIA [None]
  - PAIN IN JAW [None]
  - HEADACHE [None]
